FAERS Safety Report 5490589-6 (Version None)
Quarter: 2007Q4

REPORT INFORMATION
  Report Type: 
  Country: None (occurrence: None)
  Receive Date: 20071019
  Receipt Date: 20071008
  Transmission Date: 20080405
  Serious: Yes (Other)
  Sender: FDA-Public Use
  Company Number: US-JNJFOC-20070803115

PATIENT
  Sex: Female
  Weight: 80.74 kg

DRUGS (1)
  1. LEVAQUIN [Suspect]
     Indication: LUNG DISORDER
     Route: 065

REACTIONS (3)
  - LUNG INFECTION [None]
  - TENDON RUPTURE [None]
  - TENDONITIS [None]
